FAERS Safety Report 15739259 (Version 3)
Quarter: 2019Q1

REPORT INFORMATION
  Report Type: Spontaneous
  Country: GB (occurrence: GB)
  Receive Date: 20181219
  Receipt Date: 20190109
  Transmission Date: 20190417
  Serious: Yes (Other)
  Sender: FDA-Public Use
  Company Number: GB-BAYER-2018-232600

PATIENT
  Age: 68 Year
  Sex: Male
  Weight: 82.6 kg

DRUGS (10)
  1. XOFIGO [Suspect]
     Active Substance: RADIUM RA-223 DICHLORIDE
     Indication: METASTASES TO BONE
     Dosage: UNK
     Route: 042
     Dates: start: 20180523, end: 20180523
  2. XOFIGO [Suspect]
     Active Substance: RADIUM RA-223 DICHLORIDE
     Indication: PROSTATE CANCER
     Dosage: UNK
     Route: 042
     Dates: start: 20180620, end: 20180620
  3. XOFIGO [Suspect]
     Active Substance: RADIUM RA-223 DICHLORIDE
     Indication: PROSTATE CANCER
     Dosage: UNK
     Route: 042
     Dates: start: 20180329, end: 20180329
  4. ALENDRONIC ACID [Concomitant]
     Active Substance: ALENDRONIC ACID
  5. GOSERELIN [Concomitant]
     Active Substance: GOSERELIN
     Dosage: UNK
     Dates: start: 2013
  6. XOFIGO [Suspect]
     Active Substance: RADIUM RA-223 DICHLORIDE
     Indication: METASTASES TO SPINE
     Dosage: UNK
     Route: 042
     Dates: start: 20180425, end: 20180425
  7. XOFIGO [Suspect]
     Active Substance: RADIUM RA-223 DICHLORIDE
     Indication: PROSTATE CANCER
     Dosage: UNK
     Route: 042
     Dates: start: 20180815, end: 20180815
  8. LHRH [Concomitant]
     Active Substance: GONADORELIN DIACETATE TETRAHYDRATE
     Dosage: UNK
     Dates: start: 2013
  9. XOFIGO [Suspect]
     Active Substance: RADIUM RA-223 DICHLORIDE
     Indication: PROSTATE CANCER
     Dosage: UNK
     Route: 042
     Dates: start: 20180718, end: 20180718
  10. LUPRON DEPOT [Concomitant]
     Active Substance: LEUPROLIDE ACETATE

REACTIONS (2)
  - Traumatic fracture [Not Recovered/Not Resolved]
  - Fall [None]

NARRATIVE: CASE EVENT DATE: 20181101
